FAERS Safety Report 13714182 (Version 2)
Quarter: 2018Q2

REPORT INFORMATION
  Report Type: Spontaneous
  Country: US (occurrence: US)
  Receive Date: 20170704
  Receipt Date: 20180614
  Transmission Date: 20180711
  Serious: Yes (Hospitalization, Other)
  Sender: FDA-Public Use
  Company Number: US-ELI_LILLY_AND_COMPANY-US201706011714

PATIENT
  Sex: Female

DRUGS (5)
  1. EFFIENT [Suspect]
     Active Substance: PRASUGREL HYDROCHLORIDE
     Indication: STENT PLACEMENT
     Dosage: UNK, UNKNOWN
     Route: 048
     Dates: start: 2011, end: 2017
  2. ATORVASTATIN [Suspect]
     Active Substance: ATORVASTATIN
     Indication: PRODUCT USED FOR UNKNOWN INDICATION
     Dosage: UNK, UNKNOWN
     Route: 065
  3. RANEXA [Concomitant]
     Active Substance: RANOLAZINE
     Indication: MYOCARDIAL INFARCTION
     Dosage: UNK
     Dates: start: 2012
  4. ISOSORBIDE. [Concomitant]
     Active Substance: ISOSORBIDE
     Indication: MYOCARDIAL INFARCTION
     Dosage: UNK
  5. XANAX [Concomitant]
     Active Substance: ALPRAZOLAM
     Indication: DEPRESSION

REACTIONS (9)
  - Neck pain [Recovered/Resolved]
  - Depression [Not Recovered/Not Resolved]
  - Chest pain [Recovered/Resolved]
  - Drug intolerance [Unknown]
  - Homocystinaemia [Unknown]
  - Myocardial infarction [Recovered/Resolved]
  - Chest pain [Recovered/Resolved]
  - Chest pain [Recovered/Resolved]
  - Intervertebral disc displacement [Recovered/Resolved]

NARRATIVE: CASE EVENT DATE: 2014
